FAERS Safety Report 7426534-3 (Version None)
Quarter: 2011Q2

REPORT INFORMATION
  Report Type: 
  Country: None (occurrence: None)
  Receive Date: 20110420
  Receipt Date: 20110112
  Transmission Date: 20111010
  Serious: No
  Sender: FDA-Public Use
  Company Number: US-TEVA-262104USA

PATIENT
  Sex: Female
  Weight: 132.57 kg

DRUGS (1)
  1. PLAN B ONE-STEP [Suspect]
     Indication: POST COITAL CONTRACEPTION
     Dosage: 1.5 MILLIGRAM;
     Route: 048
     Dates: start: 20101225, end: 20101225

REACTIONS (9)
  - ABDOMINAL DISTENSION [None]
  - PELVIC PAIN [None]
  - MIGRAINE [None]
  - ARTHRALGIA [None]
  - BREAST PAIN [None]
  - DIARRHOEA [None]
  - BACK PAIN [None]
  - BREAST TENDERNESS [None]
  - MENSTRUATION IRREGULAR [None]
